FAERS Safety Report 20965206 (Version 1)
Quarter: 2022Q2

REPORT INFORMATION
  Report Type: Spontaneous
  Country: BR (occurrence: None)
  Receive Date: 20220616
  Receipt Date: 20220616
  Transmission Date: 20220721
  Serious: Yes (Other)
  Sender: FDA-Public Use
  Company Number: BR-ROCHE-3111537

PATIENT
  Age: 56 Year
  Sex: Female
  Weight: 65 kg

DRUGS (1)
  1. ATEZOLIZUMAB [Suspect]
     Active Substance: ATEZOLIZUMAB
     Indication: Breast cancer
     Route: 041
     Dates: start: 20200709, end: 20200709

REACTIONS (3)
  - Flushing [Recovered/Resolved]
  - Dyspnoea [Unknown]
  - Suffocation feeling [Unknown]

NARRATIVE: CASE EVENT DATE: 20200709
